FAERS Safety Report 16001930 (Version 1)
Quarter: 2019Q1

REPORT INFORMATION
  Report Type: Spontaneous
  Country: FR (occurrence: FR)
  Receive Date: 20190225
  Receipt Date: 20190225
  Transmission Date: 20190418
  Serious: Yes (Other)
  Sender: FDA-Public Use
  Company Number: FR-MYLANLABS-2019M1016283

PATIENT
  Age: 29 Year
  Sex: Female
  Weight: 65 kg

DRUGS (1)
  1. DESLORATADINE MYLAN 5 MG, COMPRIM? PELLICUL? [Suspect]
     Active Substance: DESLORATADINE
     Indication: ALLERGIC SINUSITIS
     Dosage: 5 MILLIGRAM, QD
     Route: 048
     Dates: start: 20170301, end: 20180728

REACTIONS (6)
  - Abdominal distension [Recovering/Resolving]
  - Gastrointestinal disorder [Recovering/Resolving]
  - Dizziness [Recovering/Resolving]
  - Constipation [Recovering/Resolving]
  - Tachycardia [Recovering/Resolving]
  - Diarrhoea [Recovering/Resolving]

NARRATIVE: CASE EVENT DATE: 201805
